FAERS Safety Report 25240784 (Version 1)
Quarter: 2025Q2

REPORT INFORMATION
  Report Type: Spontaneous
  Country: KR (occurrence: KR)
  Receive Date: 20250425
  Receipt Date: 20250425
  Transmission Date: 20250717
  Serious: Yes (Death, Other)
  Sender: MYLAN
  Company Number: KR-MYLANLABS-2025M1035075

PATIENT
  Age: 65 Year

DRUGS (24)
  1. ZELDOX [Suspect]
     Active Substance: ZIPRASIDONE
     Indication: Product used for unknown indication
     Dates: start: 20051202, end: 20060101
  2. ZELDOX [Suspect]
     Active Substance: ZIPRASIDONE
     Route: 065
     Dates: start: 20051202, end: 20060101
  3. ZELDOX [Suspect]
     Active Substance: ZIPRASIDONE
     Route: 065
     Dates: start: 20051202, end: 20060101
  4. ZELDOX [Suspect]
     Active Substance: ZIPRASIDONE
     Dates: start: 20051202, end: 20060101
  5. BENZTROPINE MESYLATE [Suspect]
     Active Substance: BENZTROPINE MESYLATE
     Indication: Product used for unknown indication
  6. BENZTROPINE MESYLATE [Suspect]
     Active Substance: BENZTROPINE MESYLATE
     Route: 065
  7. BENZTROPINE MESYLATE [Suspect]
     Active Substance: BENZTROPINE MESYLATE
     Route: 065
  8. BENZTROPINE MESYLATE [Suspect]
     Active Substance: BENZTROPINE MESYLATE
  9. CLONAZEPAM [Suspect]
     Active Substance: CLONAZEPAM
     Indication: Product used for unknown indication
  10. CLONAZEPAM [Suspect]
     Active Substance: CLONAZEPAM
     Route: 065
  11. CLONAZEPAM [Suspect]
     Active Substance: CLONAZEPAM
     Route: 065
  12. CLONAZEPAM [Suspect]
     Active Substance: CLONAZEPAM
  13. DIAZEPAM [Suspect]
     Active Substance: DIAZEPAM
     Indication: Product used for unknown indication
  14. DIAZEPAM [Suspect]
     Active Substance: DIAZEPAM
     Route: 065
  15. DIAZEPAM [Suspect]
     Active Substance: DIAZEPAM
     Route: 065
  16. DIAZEPAM [Suspect]
     Active Substance: DIAZEPAM
  17. LORAZEPAM [Suspect]
     Active Substance: LORAZEPAM
     Indication: Product used for unknown indication
  18. LORAZEPAM [Suspect]
     Active Substance: LORAZEPAM
     Route: 065
  19. LORAZEPAM [Suspect]
     Active Substance: LORAZEPAM
     Route: 065
  20. LORAZEPAM [Suspect]
     Active Substance: LORAZEPAM
  21. CHLORPROMAZINE HYDROCHLORIDE [Suspect]
     Active Substance: CHLORPROMAZINE HYDROCHLORIDE
     Indication: Product used for unknown indication
  22. CHLORPROMAZINE HYDROCHLORIDE [Suspect]
     Active Substance: CHLORPROMAZINE HYDROCHLORIDE
     Route: 065
  23. CHLORPROMAZINE HYDROCHLORIDE [Suspect]
     Active Substance: CHLORPROMAZINE HYDROCHLORIDE
     Route: 065
  24. CHLORPROMAZINE HYDROCHLORIDE [Suspect]
     Active Substance: CHLORPROMAZINE HYDROCHLORIDE

REACTIONS (4)
  - Death [Fatal]
  - Pneumonia [Unknown]
  - Dyspnoea [Unknown]
  - Pleural effusion [Unknown]

NARRATIVE: CASE EVENT DATE: 20060714
